FAERS Safety Report 9912934 (Version 1)
Quarter: 2014Q1

REPORT INFORMATION
  Report Type: Spontaneous
  Country: US (occurrence: None)
  Receive Date: 20140212
  Receipt Date: 20140212
  Transmission Date: 20141002
  Serious: Yes (Hospitalization, Other)
  Sender: FDA-Public Use
  Company Number: 2012-JP-0069

PATIENT
  Age: 61 Year
  Sex: Female

DRUGS (1)
  1. FARESTON [Suspect]
     Indication: BREAST CANCER
     Dosage: 120 MG X 1 PER 1 DAY
     Dates: start: 200707, end: 200911

REACTIONS (1)
  - Endometrial stromal sarcoma [None]
